FAERS Safety Report 4547226-4 (Version None)
Quarter: 2005Q1

REPORT INFORMATION
  Report Type: 
  Country: None (occurrence: None)
  Receive Date: 20050105
  Receipt Date: 20041222
  Transmission Date: 20050727
  Serious: Yes (Hospitalization)
  Sender: FDA-Public Use
  Company Number: 2004-BP-01541NB

PATIENT
  Age: 70 Year
  Sex: Female

DRUGS (23)
  1. BI-SIFROL             (PRAMIPEXOLE DIHYDROCHLORIDE) [Suspect]
     Indication: PARKINSON'S DISEASE
     Dosage: 1.5 MG (0.5 MG) PO
     Route: 048
     Dates: start: 20040205, end: 20040301
  2. VOLTAREN [Suspect]
     Indication: SPINAL OSTEOARTHRITIS
     Dosage: 75 MG PO
     Route: 048
     Dates: start: 20030924, end: 20040301
  3. CEFZON            (CEFDINIR) [Suspect]
     Indication: CONTUSION
     Dosage: 300 MG PO
     Route: 048
     Dates: start: 20040204, end: 20040301
  4. MUCOSTA             (REBAMIPIDE) [Suspect]
     Indication: PROPHYLAXIS
     Dosage: 300 MG PO
     Route: 048
     Dates: start: 20040204, end: 20040301
  5. DOPARL    EC         (MADOPAR) [Concomitant]
     Indication: PARKINSON'S DISEASE
     Dosage: PO
     Route: 048
  6. FP  (TA) [Concomitant]
  7. DEPAS                  (ETIZOLAM) (TA) [Concomitant]
  8. NAUZELIN               (DOMPERIDONE) (TA) [Concomitant]
     Indication: NAUSEA
     Route: 048
  9. ALFAROL           (ALFACALCIDOL) (KA) [Concomitant]
  10. ACINON (NIZATIDINE) (KA) [Concomitant]
  11. SENNOSIDE (TA) [Concomitant]
  12. BIOFERMIN (BIOFERMIN) (PL) [Concomitant]
  13. DIART (AZOSEMIDE) (TA) [Concomitant]
  14. MOHRUS                     TAPE (TTS) [Concomitant]
  15. ADOFEED                (FLURBIPROFEN) (TTS) [Concomitant]
  16. ELCITONIN                    (ELCATONIN) (AMV) [Concomitant]
  17. NEUROTROPIN                     (ORGAN LYSATE, STANDARDIZED) (TA) [Concomitant]
  18. GLAKAY                     (MENATETRENONE) (KA) [Concomitant]
  19. ASPARA-CA              (ASPARTATE CALCIUM) (TA) [Concomitant]
  20. GENTACIN                    (GENTAMICIN SULFATE) (CRO) [Concomitant]
  21. ISODINE                      (POVIDONE-IODINE) (NR) [Concomitant]
  22. GLYCERINE                      (GLYCEROL) (NR) [Concomitant]
  23. LECICARBON                (LECICARBON) (NR) [Concomitant]

REACTIONS (5)
  - CONSTIPATION [None]
  - DYSPEPSIA [None]
  - NEPHROTIC SYNDROME [None]
  - RENAL FAILURE ACUTE [None]
  - WEIGHT INCREASED [None]
